FAERS Safety Report 4963276-8 (Version None)
Quarter: 2006Q2

REPORT INFORMATION
  Report Type: 
  Country: None (occurrence: None)
  Receive Date: 20060405
  Receipt Date: 20041006
  Transmission Date: 20061013
  Serious: Yes (Life-Threatening, Hospitalization, Disabling)
  Sender: FDA-Public Use
  Company Number: US-MERCK-0410USA00840

PATIENT
  Age: 52 Year
  Sex: Male
  Weight: 73 kg

DRUGS (9)
  1. VIOXX [Suspect]
     Indication: BACK PAIN
     Route: 048
     Dates: start: 20010912, end: 20040401
  2. VIOXX [Suspect]
     Indication: INFLAMMATION
     Route: 048
     Dates: start: 20010912, end: 20040401
  3. WELLBUTRIN [Concomitant]
     Route: 065
  4. SEROQUEL [Concomitant]
     Route: 065
  5. ACIPHEX [Concomitant]
     Route: 065
  6. ZOCOR [Concomitant]
     Route: 065
  7. NIASPAN [Concomitant]
     Route: 065
  8. VICODIN [Concomitant]
     Route: 065
  9. XANAX [Concomitant]
     Route: 065

REACTIONS (4)
  - BACK INJURY [None]
  - CARDIAC DISORDER [None]
  - GASTROINTESTINAL DISORDER [None]
  - OVERDOSE [None]
